FAERS Safety Report 8175882-0 (Version None)
Quarter: 2012Q1

REPORT INFORMATION
  Report Type: 
  Country: None (occurrence: None)
  Receive Date: 20120301
  Receipt Date: 20120222
  Transmission Date: 20120608
  Serious: Yes (Death)
  Sender: FDA-Public Use
  Company Number: US-CELGENEUS-163-21880-12022601

PATIENT
  Sex: Female

DRUGS (6)
  1. PROTONIX [Concomitant]
     Route: 065
  2. REVLIMID [Suspect]
     Dosage: 10 MILLIGRAM
     Route: 048
     Dates: start: 20111104
  3. PROCHLORPERAZINE MALEATE [Concomitant]
     Route: 065
  4. DEXAMETHASONE [Concomitant]
     Route: 065
  5. VELCADE [Concomitant]
     Route: 065
  6. MAGNESIUM GLUCONATE [Concomitant]
     Route: 065

REACTIONS (1)
  - DEATH [None]
